FAERS Safety Report 6612704-0 (Version None)
Quarter: 2010Q1

REPORT INFORMATION
  Report Type: 
  Country: None (occurrence: None)
  Receive Date: 20100303
  Receipt Date: 20100222
  Transmission Date: 20100710
  Serious: No
  Sender: FDA-Public Use
  Company Number: US-BAYER-201012176NA

PATIENT
  Age: 48 Year
  Sex: Female
  Weight: 72 kg

DRUGS (1)
  1. MAGNEVIST [Suspect]
     Indication: MULTIPLE SCLEROSIS
     Dosage: TOTAL DAILY DOSE: 17 ML  UNIT DOSE: 20 ML
     Route: 042
     Dates: start: 20100106, end: 20100106

REACTIONS (1)
  - URTICARIA [None]
